FAERS Safety Report 13093806 (Version 1)
Quarter: 2017Q1

REPORT INFORMATION
  Report Type: Spontaneous
  Country: US (occurrence: US)
  Receive Date: 20170106
  Receipt Date: 20170106
  Transmission Date: 20170428
  Serious: Yes (Life-Threatening, Hospitalization)
  Sender: FDA-Public Use
  Company Number: None

PATIENT
  Age: 73 Year
  Sex: Male
  Weight: 92.4 kg

DRUGS (2)
  1. ADENOSINE. [Suspect]
     Active Substance: ADENOSINE
     Indication: SURGERY
     Dates: start: 20131220, end: 20131220
  2. ADENOSINE. [Suspect]
     Active Substance: ADENOSINE
     Indication: CARDIOVASCULAR DISORDER
     Dates: start: 20131220, end: 20131220

REACTIONS (3)
  - Respiratory depression [None]
  - Dyspnoea [None]
  - Bronchospasm [None]

NARRATIVE: CASE EVENT DATE: 20131220
